FAERS Safety Report 10063677 (Version 2)
Quarter: 2015Q2

REPORT INFORMATION
  Report Type: Report from Study
  Country: US (occurrence: US)
  Receive Date: 20140407
  Receipt Date: 20150407
  Transmission Date: 20150821
  Serious: Yes (Other)
  Sender: FDA-Public Use
  Company Number: PHEH2014US006627

PATIENT
  Sex: Female

DRUGS (2)
  1. GLEEVEC [Suspect]
     Active Substance: IMATINIB MESYLATE
     Indication: COMPLICATIONS OF BONE MARROW TRANSPLANT
  2. GLEEVEC [Suspect]
     Active Substance: IMATINIB MESYLATE
     Indication: GRAFT VERSUS HOST DISEASE
     Dosage: 100 MG, QD
     Route: 048

REACTIONS (5)
  - Mobility decreased [Unknown]
  - Skin tightness [Unknown]
  - Product use issue [Unknown]
  - Scleroderma [Unknown]
  - Skin fissures [Unknown]
